FAERS Safety Report 7018599-8 (Version None)
Quarter: 2010Q3

REPORT INFORMATION
  Report Type: 
  Country: None (occurrence: None)
  Receive Date: 20100924
  Receipt Date: 20100913
  Transmission Date: 20110219
  Serious: Yes (Hospitalization)
  Sender: FDA-Public Use
  Company Number: DSJ-2010-16451

PATIENT
  Age: 62 Year
  Sex: Female

DRUGS (4)
  1. BENICAR HCT [Suspect]
     Indication: HYPERTENSION
     Dosage: 40/25 MG (1 IN 1 D), PER ORAL
     Route: 048
     Dates: start: 20060407, end: 20090101
  2. CALCIUM (CALCIUM) (CALCIUM) [Concomitant]
  3. ALENDRONATE SODIUM (ALENDRONATE SODIUM) (ALENDRONATE SODIUM) [Concomitant]
  4. CHONDROITIN/GLUCOSAMINE (CHONDROITIN SULFATE, GLUCOSAMINE SULFATE) (CH [Concomitant]

REACTIONS (5)
  - CONDITION AGGRAVATED [None]
  - DRUG INEFFECTIVE [None]
  - HYPONATRAEMIA [None]
  - NASOPHARYNGEAL CANCER [None]
  - SINUSITIS [None]
